FAERS Safety Report 8854447 (Version 2)
Quarter: 2013Q1

REPORT INFORMATION
  Report Type: Spontaneous
  Country: GB (occurrence: GB)
  Receive Date: 20121023
  Receipt Date: 20130123
  Transmission Date: 20140127
  Serious: Yes (Other)
  Sender: FDA-Public Use
  Company Number: GB-TEVA-365001ISR

PATIENT
  Age: 62 Year
  Sex: Male
  Weight: 118.83 kg

DRUGS (2)
  1. OMEGA-3 FISH OIL [Suspect]
  2. WARFARIN [Suspect]
     Dates: start: 20120901

REACTIONS (2)
  - International normalised ratio increased [Unknown]
  - Drug interaction [Unknown]
